FAERS Safety Report 15821316 (Version 2)
Quarter: 2019Q1

REPORT INFORMATION
  Report Type: Spontaneous
  Country: BR (occurrence: BR)
  Receive Date: 20190114
  Receipt Date: 20190131
  Transmission Date: 20190417
  Serious: Yes (Other)
  Sender: FDA-Public Use
  Company Number: BR-PFIZER INC-2019011113

PATIENT
  Sex: Female

DRUGS (4)
  1. XALATAN [Suspect]
     Active Substance: LATANOPROST
     Dosage: 1 DROP, ONCE A DAY (IN LEFT SIGHT/EYE AT NIGHT)
     Route: 047
  2. XALATAN [Suspect]
     Active Substance: LATANOPROST
     Indication: CATARACT
     Dosage: ONE DROP AT EACH SIGHT/EYE
     Route: 047
     Dates: start: 1999
  3. XALATAN [Suspect]
     Active Substance: LATANOPROST
     Dosage: 1 DROP, ONCE A DAY (IN LEFT SIGHT/EYE AT NIGHT)
     Route: 047
  4. TIMOLOL. [Concomitant]
     Active Substance: TIMOLOL
     Dosage: UNK

REACTIONS (2)
  - Product use in unapproved indication [Not Recovered/Not Resolved]
  - Cataract [Recovered/Resolved]

NARRATIVE: CASE EVENT DATE: 1999
